FAERS Safety Report 10645959 (Version 2)
Quarter: 2014Q4

REPORT INFORMATION
  Report Type: Spontaneous
  Country: DE (occurrence: None)
  Receive Date: 20141209
  Receipt Date: 20141223
  Transmission Date: 20150529
  Serious: Yes (Hospitalization, Other)
  Sender: FDA-Public Use
  Company Number: B0926714A

PATIENT
  Age: 39 Year
  Sex: Male
  Weight: 73.4 kg

DRUGS (4)
  1. PREZISTA [Concomitant]
     Active Substance: DARUNAVIR ETHANOLATE
  2. NORVIR (ROTONAVIR) [Concomitant]
  3. MARAVIROC (MARAVIROC) UNKNOWN [Suspect]
     Active Substance: MARAVIROC
     Indication: HIV INFECTION
     Route: 048
     Dates: start: 20110915
  4. TRUVADA (EMTRICITABINE TENOFOIR DISOPROXIL FUMARATE [Concomitant]

REACTIONS (2)
  - Hodgkin^s disease [None]
  - Cough [None]

NARRATIVE: CASE EVENT DATE: 20130603
